FAERS Safety Report 6693124-X (Version None)
Quarter: 2010Q2

REPORT INFORMATION
  Report Type: 
  Country: None (occurrence: None)
  Receive Date: 20100422
  Receipt Date: 20100409
  Transmission Date: 20101027
  Serious: Yes (Hospitalization)
  Sender: FDA-Public Use
  Company Number: AU-GENENTECH-300213

PATIENT
  Sex: Male

DRUGS (19)
  1. RITUXIMAB [Suspect]
     Indication: DIFFUSE LARGE B-CELL LYMPHOMA
     Dosage: 800 MG, UNK
     Route: 042
     Dates: start: 20090806
  2. RITUXIMAB [Suspect]
     Dosage: 800 MG, UNK
     Route: 042
     Dates: start: 20090821
  3. RITUXIMAB [Suspect]
     Dosage: 800 MG, UNK
     Route: 042
     Dates: start: 20090904
  4. CYCLOPHOSPHAMIDE [Suspect]
     Indication: DIFFUSE LARGE B-CELL LYMPHOMA
     Dosage: 1500 MG, UNK
     Route: 042
     Dates: start: 20090807
  5. CYCLOPHOSPHAMIDE [Suspect]
     Dosage: 1500 MG, UNK
     Route: 042
     Dates: start: 20090821
  6. CYCLOPHOSPHAMIDE [Suspect]
     Dosage: 1500 MG, UNK
     Route: 042
     Dates: start: 20090904
  7. DOXORUBICIN HCL [Suspect]
     Indication: DIFFUSE LARGE B-CELL LYMPHOMA
     Dosage: 90 MG, UNK
     Route: 042
     Dates: start: 20090807
  8. DOXORUBICIN HCL [Suspect]
     Dosage: 90 MG, UNK
     Route: 042
     Dates: start: 20090821
  9. DOXORUBICIN HCL [Suspect]
     Dosage: 90 MG, UNK
     Route: 042
     Dates: start: 20090904
  10. VINCRISTINE [Suspect]
     Indication: DIFFUSE LARGE B-CELL LYMPHOMA
     Dosage: 2 MG, UNK
     Route: 042
     Dates: start: 20090807
  11. VINCRISTINE [Suspect]
     Dosage: 2 MG, UNK
     Route: 042
     Dates: start: 20090821
  12. VINCRISTINE [Suspect]
     Dosage: 2 MG, UNK
     Route: 042
     Dates: start: 20090904
  13. PREDNISONE [Suspect]
     Indication: DIFFUSE LARGE B-CELL LYMPHOMA
     Dosage: 500 MG, X5
     Route: 048
     Dates: start: 20090806, end: 20090810
  14. PREDNISONE [Suspect]
     Dosage: 500 MG, X5
     Route: 048
     Dates: start: 20090821, end: 20090825
  15. PREDNISONE [Suspect]
     Dosage: 500 MG, X5
     Route: 048
     Dates: start: 20090904, end: 20090908
  16. ZEVALIN [Suspect]
     Indication: DIFFUSE LARGE B-CELL LYMPHOMA
     Dosage: UNK
     Route: 065
  17. PEGFILGRASTIM [Suspect]
     Indication: DIFFUSE LARGE B-CELL LYMPHOMA
     Dosage: UNK
     Route: 058
     Dates: start: 20090821
  18. PEGFILGRASTIM [Suspect]
     Dosage: UNK
     Route: 058
     Dates: start: 20090904
  19. LENOGRASTIM [Suspect]
     Indication: DIFFUSE LARGE B-CELL LYMPHOMA
     Dosage: UNK
     Route: 065
     Dates: start: 20090808

REACTIONS (4)
  - CYTOKINE RELEASE SYNDROME [None]
  - HYPERCALCAEMIA [None]
  - OESOPHAGEAL HAEMORRHAGE [None]
  - TUMOUR LYSIS SYNDROME [None]
